FAERS Safety Report 5087301-1 (Version None)
Quarter: 2006Q3

REPORT INFORMATION
  Report Type: 
  Country: None (occurrence: None)
  Receive Date: 20060821
  Receipt Date: 20060803
  Transmission Date: 20061208
  Serious: Yes (Hospitalization, Other)
  Sender: FDA-Public Use
  Company Number: SP-2006-003144

PATIENT
  Age: 28 Year
  Sex: Female

DRUGS (2)
  1. BENICAR [Suspect]
     Indication: INFLAMMATION
     Dosage: 40 MG QID PO
     Route: 048
     Dates: start: 20060101
  2. BENICAR [Suspect]
     Indication: LYME DISEASE
     Dosage: 40 MG QID PO
     Route: 048
     Dates: start: 20060101

REACTIONS (2)
  - BLOOD CREATININE INCREASED [None]
  - BLOOD POTASSIUM INCREASED [None]
